FAERS Safety Report 7400168-9 (Version None)
Quarter: 2011Q2

REPORT INFORMATION
  Report Type: 
  Country: None (occurrence: None)
  Receive Date: 20110407
  Receipt Date: 20110329
  Transmission Date: 20111010
  Serious: Yes (Hospitalization, Other)
  Sender: FDA-Public Use
  Company Number: PHHY2008CA21487

PATIENT
  Sex: Female

DRUGS (5)
  1. SANDOSTATIN LAR [Suspect]
     Dosage: 40 MG, EVERY THREE WEEKS
     Route: 030
  2. SANDOSTATIN LAR [Suspect]
     Dosage: 40 MG, QMO
     Route: 030
  3. SANDOSTATIN LAR [Suspect]
     Dosage: 40 MG, EVERY 4 WEEKS
     Route: 030
  4. SANDOSTATIN LAR [Suspect]
     Dosage: 40 MG, QMO
     Route: 030
  5. SANDOSTATIN LAR [Suspect]
     Indication: NEUROENDOCRINE TUMOUR
     Dosage: 30 MG, QMO
     Route: 030
     Dates: start: 20070924

REACTIONS (6)
  - BILE DUCT OBSTRUCTION [None]
  - ABDOMINAL PAIN [None]
  - INFECTION [None]
  - ENTEROCOCCUS TEST POSITIVE [None]
  - PYREXIA [None]
  - DIABETES MELLITUS [None]
